FAERS Safety Report 6729837-0 (Version None)
Quarter: 2010Q2

REPORT INFORMATION
  Report Type: 
  Country: None (occurrence: None)
  Receive Date: 20100513
  Receipt Date: 20100505
  Transmission Date: 20101027
  Serious: Yes (Other)
  Sender: FDA-Public Use
  Company Number: OMPQ-NO-1005S-0296

PATIENT
  Age: 41 Year
  Sex: Female

DRUGS (1)
  1. OMNIPAQUE 140 [Suspect]
     Indication: DRUG USE FOR UNKNOWN INDICATION
     Dosage: 90 ML, SINGLE DOSE, EXTRAVASATION
     Route: 042
     Dates: start: 20100412, end: 20100412

REACTIONS (1)
  - INFUSION SITE EXTRAVASATION [None]
